FAERS Safety Report 18203040 (Version 1)
Quarter: 2020Q3

REPORT INFORMATION
  Report Type: Spontaneous
  Country: US (occurrence: US)
  Receive Date: 20200827
  Receipt Date: 20200827
  Transmission Date: 20201103
  Serious: Yes (Hospitalization)
  Sender: FDA-Public Use
  Company Number: US-MYLANLABS-2020M1074084

PATIENT
  Age: 6 Month
  Sex: Male

DRUGS (3)
  1. VITAMIN K [Suspect]
     Active Substance: PHYTONADIONE
     Indication: INTERNATIONAL NORMALISED RATIO INCREASED
     Route: 065
  2. PREDNISOLONE. [Suspect]
     Active Substance: PREDNISOLONE
     Indication: HEPATIC ENZYME INCREASED
     Dosage: 1 MG/KG, QD, ONE DAY BEFORE AVXS?101 DOSING AND FOR 30 DAYS AFTER THE AVXS?101 INFUSION ...
     Route: 048
  3. NUSINERSEN [Concomitant]
     Active Substance: NUSINERSEN
     Indication: SPINAL MUSCULAR ATROPHY
     Dosage: RECEIVED 4 DOSES
     Route: 065

REACTIONS (1)
  - Drug ineffective [Unknown]
